FAERS Safety Report 4634218-X (Version None)
Quarter: 2005Q2

REPORT INFORMATION
  Report Type: 
  Country: None (occurrence: None)
  Receive Date: 20050413
  Receipt Date: 20041022
  Transmission Date: 20051028
  Serious: Yes (Hospitalization)
  Sender: FDA-Public Use
  Company Number: ES-SANOFI-SYNTHELABO-F01200403342

PATIENT
  Sex: Female
  Weight: 54.5 kg

DRUGS (4)
  1. OXALIPLATIN [Suspect]
     Indication: COLORECTAL CANCER METASTATIC
     Route: 042
     Dates: start: 20040304, end: 20040304
  2. FLUOROURACIL [Suspect]
     Dosage: 3600 MG (2250 MG/M2 IN 48 HOURS, WEEKLY)
     Route: 042
     Dates: start: 20040311, end: 20040311
  3. OMEPRAZOLE [Concomitant]
     Indication: PROPHYLAXIS
     Dosage: 20 MG
     Route: 048
     Dates: start: 20040304
  4. AKINETON [Concomitant]
     Indication: TREMOR
     Dosage: 3 UNIT
     Route: 048
     Dates: start: 20040318

REACTIONS (1)
  - NEUROLOGICAL SYMPTOM [None]
